FAERS Safety Report 15427487 (Version 1)
Quarter: 2018Q3

REPORT INFORMATION
  Report Type: Report from Study
  Country: US (occurrence: US)
  Receive Date: 20180925
  Receipt Date: 20180925
  Transmission Date: 20181010
  Serious: Yes (Hospitalization, Other)
  Sender: FDA-Public Use
  Company Number: US-SHIRE-US201836750

PATIENT
  Sex: Female
  Weight: 55.33 kg

DRUGS (3)
  1. GATTEX [Suspect]
     Active Substance: TEDUGLUTIDE\WATER
     Indication: SHORT-BOWEL SYNDROME
     Dosage: 1.3 MG, 1X/DAY:QD
     Route: 058
     Dates: start: 20180408
  2. GATTEX [Suspect]
     Active Substance: TEDUGLUTIDE\WATER
     Dosage: 2.6 MG, 1X/DAY:QD
     Route: 058
  3. GATTEX [Suspect]
     Active Substance: TEDUGLUTIDE\WATER
     Dosage: 1.3 MG, UNK
     Route: 058

REACTIONS (7)
  - Crohn^s disease [Unknown]
  - Fatigue [Unknown]
  - Dyspepsia [Unknown]
  - Dizziness [Unknown]
  - Asthma [Unknown]
  - Influenza like illness [Unknown]
  - Nausea [Unknown]
